FAERS Safety Report 23423131 (Version 1)
Quarter: 2024Q1

REPORT INFORMATION
  Report Type: Spontaneous
  Country: US (occurrence: None)
  Receive Date: 20240119
  Receipt Date: 20240119
  Transmission Date: 20240409
  Serious: Yes (Death)
  Sender: FDA-Public Use
  Company Number: None

PATIENT
  Age: 56 Year
  Sex: Male

DRUGS (12)
  1. MYCOPHENOLIC ACID [Suspect]
     Active Substance: MYCOPHENOLIC ACID
     Indication: Renal transplant
     Dosage: OTHER FREQUENCY : EVERY12HOURS;?
     Route: 048
     Dates: start: 20231121, end: 20231222
  2. TACROLIMUS [Suspect]
     Active Substance: TACROLIMUS
  3. CLONIDINE [Concomitant]
  4. ELIQUIS [Concomitant]
  5. HYDRALAZINE [Concomitant]
  6. PHOSPHA [Concomitant]
  7. PANTOPRAZOLE [Concomitant]
  8. PRAVACHOL [Concomitant]
  9. ALENDRONATE [Concomitant]
  10. ASPIRIN [Concomitant]
     Active Substance: ASPIRIN
  11. METOPROLOL ER SUCCINATE [Concomitant]
  12. NOVOLOG FLEXPEN INJ [Concomitant]

REACTIONS (1)
  - Infection [None]

NARRATIVE: CASE EVENT DATE: 20231222
